FAERS Safety Report 16096793 (Version 1)
Quarter: 2019Q1

REPORT INFORMATION
  Report Type: Spontaneous
  Country: US (occurrence: US)
  Receive Date: 20190320
  Receipt Date: 20190320
  Transmission Date: 20190418
  Serious: Yes (Hospitalization, Other)
  Sender: FDA-Public Use
  Company Number: US-ALLERGAN-1909639US

PATIENT
  Sex: Female

DRUGS (2)
  1. ROXICODONE [Suspect]
     Active Substance: OXYCODONE HYDROCHLORIDE
     Indication: HEADACHE
     Dosage: 5 MG
     Dates: start: 201803, end: 201812
  2. NORCO [Suspect]
     Active Substance: ACETAMINOPHEN\HYDROCODONE BITARTRATE
     Indication: BACK PAIN
     Dosage: 10 MG
     Dates: start: 201806, end: 201812

REACTIONS (5)
  - Headache [Unknown]
  - Cerebral arteriosclerosis [Unknown]
  - Cerebrovascular accident [Unknown]
  - Cardiac disorder [Recovered/Resolved]
  - Cerebral infarction [Unknown]
